FAERS Safety Report 5050127-9 (Version None)
Quarter: 2006Q3

REPORT INFORMATION
  Report Type: 
  Country: None (occurrence: None)
  Receive Date: 20060707
  Receipt Date: 20060621
  Transmission Date: 20061208
  Serious: Yes (Other)
  Sender: FDA-Public Use
  Company Number: 230001K06DEU

PATIENT
  Sex: Female

DRUGS (5)
  1. REBIF [Suspect]
     Indication: SECONDARY PROGRESSIVE MULTIPLE SCLEROSIS
     Dates: start: 20040501, end: 20051101
  2. CORTICOSTEROID NOS [Suspect]
     Dosage: 2 IN 1 MONTHS
     Dates: start: 20050401, end: 20050401
  3. AMITRIPTYLINE HYDROCHLORIDE [Concomitant]
  4. PREGABALIN [Concomitant]
  5. VALORON N /00628301/ [Concomitant]

REACTIONS (4)
  - DIABETES MELLITUS NON-INSULIN-DEPENDENT [None]
  - GENERAL PHYSICAL CONDITION ABNORMAL [None]
  - HEPATOCELLULAR DAMAGE [None]
  - NEURALGIA [None]
